FAERS Safety Report 23796501 (Version 1)
Quarter: 2024Q2

REPORT INFORMATION
  Report Type: Spontaneous
  Country: US (occurrence: US)
  Receive Date: 20240430
  Receipt Date: 20240430
  Transmission Date: 20240716
  Serious: Yes (Other)
  Sender: FDA-Public Use
  Company Number: US-AMGEN-USASP2024082860

PATIENT
  Sex: Female

DRUGS (1)
  1. REPATHA [Suspect]
     Active Substance: EVOLOCUMAB
     Indication: Product used for unknown indication
     Dosage: UNK
     Route: 065

REACTIONS (10)
  - Hydronephrosis [Unknown]
  - Nephrolithiasis [Unknown]
  - Sneezing [Unknown]
  - Rhinorrhoea [Unknown]
  - Throat irritation [Unknown]
  - Diarrhoea [Unknown]
  - Pyrexia [Unknown]
  - Back pain [Unknown]
  - Muscle spasms [Unknown]
  - Polyuria [Unknown]

NARRATIVE: CASE EVENT DATE: 20240401
